FAERS Safety Report 6965923-8 (Version None)
Quarter: 2010Q3

REPORT INFORMATION
  Report Type: 
  Country: None (occurrence: None)
  Receive Date: 20100903
  Receipt Date: 20100827
  Transmission Date: 20110219
  Serious: Yes (Other)
  Sender: FDA-Public Use
  Company Number: FR-BAYER-201037758GPV

PATIENT
  Age: 71 Year
  Sex: Male

DRUGS (9)
  1. NEXAVAR [Suspect]
     Indication: HEPATIC NEOPLASM MALIGNANT
     Route: 048
     Dates: start: 20091001
  2. NEXAVAR [Suspect]
     Route: 048
     Dates: start: 20100201
  3. NEXAVAR [Suspect]
     Route: 048
     Dates: start: 20100301
  4. NEXAVAR [Suspect]
     Route: 048
  5. PREVISCAN [Concomitant]
  6. DIGOXIN [Concomitant]
  7. MEDIATENSYL [Concomitant]
  8. IPERTEN [Concomitant]
  9. RAMIPRIL [Concomitant]

REACTIONS (3)
  - ARTHRALGIA [None]
  - SKIN LESION [None]
  - VASCULITIS [None]
